FAERS Safety Report 21933486 (Version 2)
Quarter: 2023Q1

REPORT INFORMATION
  Report Type: Spontaneous
  Country: US (occurrence: US)
  Receive Date: 20230201
  Receipt Date: 20230206
  Transmission Date: 20230418
  Serious: Yes (Hospitalization)
  Sender: FDA-Public Use
  Company Number: US-UROGEN PHARMA LTD.-2023-UGN-000011

PATIENT

DRUGS (2)
  1. JELMYTO [Suspect]
     Active Substance: MITOMYCIN
     Indication: Transitional cell cancer of the renal pelvis and ureter
     Dosage: ONE TIME PER WEEK (INSTILLATION)
     Dates: start: 20230109, end: 20230109
  2. JELMYTO [Suspect]
     Active Substance: MITOMYCIN
     Dosage: ONE TIME PER WEEK (INSTILLATION)
     Dates: start: 20230116, end: 20230116

REACTIONS (3)
  - Malaise [Unknown]
  - White blood cell count decreased [Unknown]
  - Haematuria [Unknown]

NARRATIVE: CASE EVENT DATE: 20230101
